FAERS Safety Report 7141109-1 (Version None)
Quarter: 2010Q4

REPORT INFORMATION
  Report Type: 
  Country: None (occurrence: None)
  Receive Date: 20101202
  Receipt Date: 20101202
  Transmission Date: 20110411
  Serious: Yes (Other)
  Sender: FDA-Public Use
  Company Number: None

PATIENT
  Age: 68 Year
  Sex: Male

DRUGS (2)
  1. LISINOPRIL [Suspect]
     Indication: HYPERTENSION
     Dosage: 20MG EVERYDAY PO
     Route: 048
     Dates: start: 20101124, end: 20101201
  2. LISINOPRIL [Suspect]
     Indication: PROTEINURIA
     Dosage: 20MG EVERYDAY PO
     Route: 048
     Dates: start: 20101124, end: 20101201

REACTIONS (3)
  - ANGIOEDEMA [None]
  - PRURITUS [None]
  - URTICARIA [None]
